FAERS Safety Report 5472284-2 (Version None)
Quarter: 2007Q3

REPORT INFORMATION
  Report Type: 
  Country: None (occurrence: None)
  Receive Date: 20070925
  Receipt Date: 20070907
  Transmission Date: 20080115
  Serious: Yes (Other)
  Sender: FDA-Public Use
  Company Number: 07092247

PATIENT
  Age: 76 Year
  Sex: Female

DRUGS (6)
  1. PACERONE [Suspect]
     Indication: ATRIAL FIBRILLATION
     Dosage: 50MG, QD, ORAL
     Route: 048
     Dates: start: 20060901
  2. SYNTHROID [Suspect]
  3. COUMADIN [Concomitant]
  4. XANAX [Concomitant]
  5. BONIVA (IBANDRONATE SODIUM) [Concomitant]
  6. ZESTRIL [Concomitant]

REACTIONS (6)
  - ALOPECIA [None]
  - FALL [None]
  - HOT FLUSH [None]
  - HYPERTENSION [None]
  - NIGHT SWEATS [None]
  - PULSE ABNORMAL [None]
